FAERS Safety Report 13896238 (Version 1)
Quarter: 2017Q3

REPORT INFORMATION
  Report Type: Spontaneous
  Country: US (occurrence: US)
  Receive Date: 20170822
  Receipt Date: 20170822
  Transmission Date: 20171127
  Serious: Yes (Hospitalization, Disabling, Other)
  Sender: FDA-Public Use
  Company Number: None

PATIENT
  Age: 51 Year
  Sex: Female
  Weight: 81 kg

DRUGS (10)
  1. LAMICTAL [Concomitant]
     Active Substance: LAMOTRIGINE
  2. TEGRETOL [Concomitant]
     Active Substance: CARBAMAZEPINE
  3. SEROQUEL [Concomitant]
     Active Substance: QUETIAPINE FUMARATE
  4. WELLBUTRIN [Concomitant]
     Active Substance: BUPROPION HYDROCHLORIDE
  5. ATORVASTATIN [Suspect]
     Active Substance: ATORVASTATIN
     Indication: BLOOD CHOLESTEROL
     Dosage: ?          QUANTITY:1 TABLET(S);?DAILY ORAL
     Route: 048
     Dates: start: 20120505, end: 20170221
  6. IBUPROFEN. [Concomitant]
     Active Substance: IBUPROFEN
  7. MULTIVITAMIN [Concomitant]
     Active Substance: VITAMINS
  8. PRAZOSIN. [Concomitant]
     Active Substance: PRAZOSIN
  9. ESTRADIOL. [Concomitant]
     Active Substance: ESTRADIOL
  10. ATIVAN [Concomitant]
     Active Substance: LORAZEPAM

REACTIONS (8)
  - Atrophy [None]
  - Necrosis [None]
  - Myopathy [None]
  - Autoimmune disorder [None]
  - Gait inability [None]
  - Pain [None]
  - Impaired self-care [None]
  - Fatigue [None]

NARRATIVE: CASE EVENT DATE: 20170221
